FAERS Safety Report 5480967-3 (Version None)
Quarter: 2007Q4

REPORT INFORMATION
  Report Type: 
  Country: None (occurrence: None)
  Receive Date: 20071009
  Receipt Date: 20070928
  Transmission Date: 20080405
  Serious: Yes (Hospitalization, Other)
  Sender: FDA-Public Use
  Company Number: US-AMGEN-US241151

PATIENT
  Sex: Male
  Weight: 85 kg

DRUGS (8)
  1. PROCRIT [Suspect]
     Indication: RENAL FAILURE CHRONIC
     Route: 058
     Dates: start: 20040701, end: 20070709
  2. HYDROXYCHLOROQUINE SULFATE [Suspect]
     Route: 065
     Dates: start: 20021101
  3. ARANESP [Suspect]
     Indication: RENAL FAILURE CHRONIC
  4. ALLOPURINOL [Concomitant]
     Route: 065
     Dates: start: 20020101, end: 20070101
  5. PREDNISONE [Concomitant]
     Route: 065
  6. BICITRA [Concomitant]
     Route: 065
  7. PRILOSEC [Concomitant]
     Route: 065
  8. FOLIC ACID [Concomitant]

REACTIONS (3)
  - APLASIA PURE RED CELL [None]
  - GASTRITIS [None]
  - UPPER RESPIRATORY TRACT INFECTION [None]
